FAERS Safety Report 21376202 (Version 1)
Quarter: 2022Q3

REPORT INFORMATION
  Report Type: Spontaneous
  Country: US (occurrence: None)
  Receive Date: 20220923
  Receipt Date: 20220923
  Transmission Date: 20221027
  Serious: Yes (Other)
  Sender: FDA-Public Use
  Company Number: None

PATIENT
  Sex: 0

DRUGS (1)
  1. ASENAPINE [Suspect]
     Active Substance: ASENAPINE
     Dosage: FREQUENCY : DAILY;?
     Route: 060

REACTIONS (4)
  - Stomatitis [None]
  - Swollen tongue [None]
  - Oral discomfort [None]
  - Product substitution issue [None]

NARRATIVE: CASE EVENT DATE: 20220908
